FAERS Safety Report 14419360 (Version 1)
Quarter: 2018Q1

REPORT INFORMATION
  Report Type: Spontaneous
  Country: US (occurrence: US)
  Receive Date: 20180120
  Receipt Date: 20180120
  Transmission Date: 20180509
  Serious: No
  Sender: FDA-Public Use
  Company Number: None

PATIENT
  Age: 91 Year
  Sex: Female
  Weight: 65.25 kg

DRUGS (1)
  1. FENTANYL TRANSDERMAL SYSTEM [Suspect]
     Active Substance: FENTANYL
     Indication: PAIN
     Dosage: QUANTITY:1 PATCH;OTHER FREQUENCY:72 HOURS;?
     Route: 061

REACTIONS (1)
  - Product label issue [None]

NARRATIVE: CASE EVENT DATE: 20180118
